FAERS Safety Report 6475554-4 (Version None)
Quarter: 2009Q4

REPORT INFORMATION
  Report Type: 
  Country: None (occurrence: None)
  Receive Date: 20091204
  Receipt Date: 20091111
  Transmission Date: 20100525
  Serious: Yes (Death)
  Sender: FDA-Public Use
  Company Number: KR-PFIZER INC-2009284610

PATIENT
  Age: 39 Year
  Sex: Female
  Weight: 48 kg

DRUGS (3)
  1. VORICONAZOLE [Suspect]
     Indication: ASPERGILLOSIS
     Dosage: 400 MG, 2X/DAY
     Route: 042
     Dates: start: 20080625, end: 20080625
  2. VORICONAZOLE [Suspect]
     Dosage: 200 MG, 2X/DAY
     Route: 042
     Dates: start: 20080626, end: 20080626
  3. TAZOCIN [Concomitant]
     Indication: BACTERIAL INFECTION
     Dosage: 450 MG, 3X/DAY
     Route: 042
     Dates: start: 20080622, end: 20080626

REACTIONS (1)
  - CONDITION AGGRAVATED [None]
